FAERS Safety Report 21269205 (Version 5)
Quarter: 2022Q4

REPORT INFORMATION
  Report Type: Report from Study
  Country: EG (occurrence: EG)
  Receive Date: 20220830
  Receipt Date: 20221221
  Transmission Date: 20230113
  Serious: No
  Sender: FDA-Public Use
  Company Number: EG-JNJFOC-20220845687

PATIENT
  Age: 37 Year
  Sex: Male

DRUGS (6)
  1. ESKETAMINE [Suspect]
     Active Substance: ESKETAMINE
     Indication: Product used for unknown indication
     Dates: start: 20220726
  2. ESKETAMINE [Suspect]
     Active Substance: ESKETAMINE
     Dates: start: 20220811
  3. ESKETAMINE [Suspect]
     Active Substance: ESKETAMINE
     Dates: start: 20220828
  4. ESKETAMINE [Suspect]
     Active Substance: ESKETAMINE
     Dates: start: 20220910
  5. ESKETAMINE [Suspect]
     Active Substance: ESKETAMINE
     Dosage: CYCLE 12 TO BE TOMORROW 04/10/2022
     Dates: start: 20220925
  6. ESKETAMINE [Suspect]
     Active Substance: ESKETAMINE
     Dates: start: 20221127

REACTIONS (2)
  - Road traffic accident [Unknown]
  - Product dose omission issue [Unknown]

NARRATIVE: CASE EVENT DATE: 20220814
